FAERS Safety Report 7351132-X (Version None)
Quarter: 2011Q1

REPORT INFORMATION
  Report Type: 
  Country: None (occurrence: None)
  Receive Date: 20110304
  Receipt Date: 20110218
  Transmission Date: 20110831
  Serious: Yes (Hospitalization)
  Sender: FDA-Public Use
  Company Number: 026458

PATIENT
  Sex: Female
  Weight: 141.8 kg

DRUGS (3)
  1. PREDNISONE [Concomitant]
  2. ENTOCORT EC [Concomitant]
  3. CIMZIA [Suspect]
     Indication: CROHN'S DISEASE
     Dosage: (400 MG 1X/2 WEEKS SUBCUTANEOUS)
     Route: 058
     Dates: start: 20101204

REACTIONS (2)
  - ABDOMINAL WALL ABSCESS [None]
  - FISTULA [None]
